FAERS Safety Report 6023011-1 (Version None)
Quarter: 2008Q4

REPORT INFORMATION
  Report Type: 
  Country: None (occurrence: None)
  Receive Date: 20081230
  Receipt Date: 20080402
  Transmission Date: 20090506
  Serious: No
  Sender: FDA-Public Use
  Company Number: US-ABBOTT-08P-163-0445267-00

PATIENT
  Age: 13 Month
  Sex: Female

DRUGS (1)
  1. OMNICEF [Suspect]
     Indication: RESPIRATORY TRACT INFECTION
     Dosage: 125 MG IN 125 ML PRESCRIBED 4 IN 1 DAY
     Route: 048
     Dates: start: 20080320, end: 20080326

REACTIONS (5)
  - ACCIDENTAL OVERDOSE [None]
  - DERMATITIS DIAPER [None]
  - DIARRHOEA [None]
  - GENITAL SWELLING [None]
  - VOMITING [None]
